FAERS Safety Report 5909163-X (Version None)
Quarter: 2008Q4

REPORT INFORMATION
  Report Type: 
  Country: None (occurrence: None)
  Receive Date: 20081006
  Receipt Date: 20080927
  Transmission Date: 20090506
  Serious: Yes (Hospitalization)
  Sender: FDA-Public Use
  Company Number: FR-WYE-G02250008

PATIENT
  Age: 37 Year
  Sex: Female

DRUGS (2)
  1. EFFEXOR [Suspect]
     Indication: DEPRESSION
     Route: 048
     Dates: start: 20080101, end: 20080823
  2. DEPAKENE [Concomitant]
     Indication: EPILEPSY
     Dosage: UNKNOWN

REACTIONS (4)
  - COMA [None]
  - CONDITION AGGRAVATED [None]
  - EPILEPSY [None]
  - PYREXIA [None]
